FAERS Safety Report 17950774 (Version 4)
Quarter: 2020Q3

REPORT INFORMATION
  Report Type: Report from Study
  Country: US (occurrence: US)
  Receive Date: 20200626
  Receipt Date: 20200904
  Transmission Date: 20201103
  Serious: No
  Sender: FDA-Public Use
  Company Number: NVSC2020US180749

PATIENT
  Age: 60 Year
  Sex: Male

DRUGS (1)
  1. ENTRESTO [Suspect]
     Active Substance: SACUBITRIL\VALSARTAN
     Indication: CARDIAC FAILURE
     Dosage: 49.51 MG, BID
     Route: 048
     Dates: start: 201906

REACTIONS (4)
  - Fluid intake reduced [Unknown]
  - Oliguria [Unknown]
  - Fatigue [Unknown]
  - Bursitis [Unknown]

NARRATIVE: CASE EVENT DATE: 20200610
